FAERS Safety Report 23028003 (Version 2)
Quarter: 2023Q4

REPORT INFORMATION
  Report Type: Spontaneous
  Country: JP (occurrence: JP)
  Receive Date: 20231004
  Receipt Date: 20231213
  Transmission Date: 20240109
  Serious: Yes (Other)
  Sender: FDA-Public Use
  Company Number: JP-JNJFOC-20220451262

PATIENT
  Age: 75 Year
  Sex: Male

DRUGS (49)
  1. TRAMCET [Suspect]
     Active Substance: ACETAMINOPHEN\TRAMADOL
     Indication: Pain
     Route: 048
     Dates: start: 202204
  2. TRAMCET [Suspect]
     Active Substance: ACETAMINOPHEN\TRAMADOL
     Route: 048
     Dates: start: 20220425, end: 20220425
  3. TRAMCET [Suspect]
     Active Substance: ACETAMINOPHEN\TRAMADOL
     Route: 048
     Dates: start: 20220426
  4. TRAMCET [Suspect]
     Active Substance: ACETAMINOPHEN\TRAMADOL
     Route: 048
     Dates: start: 202204
  5. TRAMCET [Suspect]
     Active Substance: ACETAMINOPHEN\TRAMADOL
     Route: 048
     Dates: start: 202204
  6. TRAMCET [Suspect]
     Active Substance: ACETAMINOPHEN\TRAMADOL
     Dosage: TOTAL DAILY DOSE:3.5 TABLET1 TABLET (IN THE MORNING, AFTERNOON AND EVENING)0.5 TABLET (AT BEDTIME)
     Route: 048
     Dates: start: 2022, end: 2022
  7. TRAMCET [Suspect]
     Active Substance: ACETAMINOPHEN\TRAMADOL
     Dosage: TOTAL DAILY DOSE:4 TABLET
     Route: 048
     Dates: start: 2022, end: 2022
  8. TRAMCET [Suspect]
     Active Substance: ACETAMINOPHEN\TRAMADOL
     Route: 048
     Dates: start: 2022, end: 2022
  9. TRAMCET [Suspect]
     Active Substance: ACETAMINOPHEN\TRAMADOL
     Route: 048
     Dates: start: 2022, end: 2022
  10. TRAMCET [Suspect]
     Active Substance: ACETAMINOPHEN\TRAMADOL
     Route: 048
     Dates: start: 2022
  11. TRAMCET [Suspect]
     Active Substance: ACETAMINOPHEN\TRAMADOL
     Route: 048
     Dates: start: 2022
  12. TRAMCET [Suspect]
     Active Substance: ACETAMINOPHEN\TRAMADOL
     Dosage: 0.5-1DF 2 TIMES PER 1 DAY
     Route: 048
     Dates: start: 2022
  13. TRAMCET [Suspect]
     Active Substance: ACETAMINOPHEN\TRAMADOL
     Route: 048
     Dates: start: 202207
  14. TRAMCET [Suspect]
     Active Substance: ACETAMINOPHEN\TRAMADOL
     Route: 048
     Dates: start: 202207
  15. TRAMCET [Suspect]
     Active Substance: ACETAMINOPHEN\TRAMADOL
     Route: 048
     Dates: start: 202207
  16. TRAMCET [Suspect]
     Active Substance: ACETAMINOPHEN\TRAMADOL
     Dosage: 1/3 DF
     Route: 048
     Dates: start: 2022
  17. TRAMCET [Suspect]
     Active Substance: ACETAMINOPHEN\TRAMADOL
     Dosage: DOSE UNKNOWN
     Route: 048
     Dates: start: 2022
  18. TRAMCET [Suspect]
     Active Substance: ACETAMINOPHEN\TRAMADOL
     Dosage: HALF A TABLET BEFORE MEALS, HALF A TABLET AFTER MEALS
     Route: 048
     Dates: start: 2022
  19. TRAMCET [Suspect]
     Active Substance: ACETAMINOPHEN\TRAMADOL
     Route: 048
     Dates: start: 2022
  20. TRAMCET [Suspect]
     Active Substance: ACETAMINOPHEN\TRAMADOL
     Route: 048
     Dates: start: 2022
  21. TRAMCET [Suspect]
     Active Substance: ACETAMINOPHEN\TRAMADOL
     Route: 048
     Dates: start: 2022
  22. TRAMCET [Suspect]
     Active Substance: ACETAMINOPHEN\TRAMADOL
     Route: 048
  23. TRAMCET [Suspect]
     Active Substance: ACETAMINOPHEN\TRAMADOL
     Route: 048
  24. TRAMCET [Suspect]
     Active Substance: ACETAMINOPHEN\TRAMADOL
     Dosage: DOSE UNKNOWN
     Route: 048
  25. FENTANYL [Suspect]
     Active Substance: FENTANYL\FENTANYL CITRATE
     Indication: Pain
     Route: 062
     Dates: start: 2023
  26. ETIZOLAM [Suspect]
     Active Substance: ETIZOLAM
     Indication: Product used for unknown indication
     Dosage: ABOUT 1 MG/DAY
     Route: 048
  27. LUNESTA [Suspect]
     Active Substance: ESZOPICLONE
     Indication: Product used for unknown indication
     Dosage: DOSE UNKNOWN
     Route: 048
  28. MAGNESIUM OXIDE [Suspect]
     Active Substance: MAGNESIUM OXIDE
     Indication: Constipation
     Dosage: DOSE UNKNOWN
     Route: 048
     Dates: end: 2021
  29. MAGNESIUM OXIDE [Suspect]
     Active Substance: MAGNESIUM OXIDE
     Dosage: IN THE MORNING
     Route: 048
     Dates: start: 202209, end: 2022
  30. AMITIZA [Suspect]
     Active Substance: LUBIPROSTONE
     Indication: Product used for unknown indication
     Dosage: DOSE UNKNOWN
     Route: 048
  31. NORSPAN [Suspect]
     Active Substance: BUPRENORPHINE
     Indication: Product used for unknown indication
     Dosage: DOSE UNKNOWN
     Route: 062
  32. NORSPAN [Suspect]
     Active Substance: BUPRENORPHINE
     Dosage: DOSE UNKNOWN
     Route: 062
  33. MOVICOL [Suspect]
     Active Substance: POLYETHYLENE GLYCOL 3350\POTASSIUM CHLORIDE\SODIUM BICARBONATE\SODIUM CHLORIDE
     Indication: Constipation
     Dosage: 1 BAG A DAY
     Route: 048
     Dates: start: 2021
  34. MOVICOL [Suspect]
     Active Substance: POLYETHYLENE GLYCOL 3350\POTASSIUM CHLORIDE\SODIUM BICARBONATE\SODIUM CHLORIDE
     Indication: Constipation
     Dosage: 2 BAGS A DAY
     Route: 048
  35. MOVICOL [Suspect]
     Active Substance: POLYETHYLENE GLYCOL 3350\POTASSIUM CHLORIDE\SODIUM BICARBONATE\SODIUM CHLORIDE
     Indication: Constipation
     Dosage: 1.5 BAGS IN THE MORNING, 1.5 BAGS IN THE AFTERNOON
     Route: 048
  36. MOVICOL [Suspect]
     Active Substance: POLYETHYLENE GLYCOL 3350\POTASSIUM CHLORIDE\SODIUM BICARBONATE\SODIUM CHLORIDE
     Indication: Constipation
     Dosage: 4 BAGS A DAY
     Route: 048
     Dates: start: 202204, end: 2022
  37. MOVICOL [Suspect]
     Active Substance: POLYETHYLENE GLYCOL 3350\POTASSIUM CHLORIDE\SODIUM BICARBONATE\SODIUM CHLORIDE
     Indication: Constipation
     Dosage: DOSE UNKNOWN
     Route: 048
  38. MOVICOL [Suspect]
     Active Substance: POLYETHYLENE GLYCOL 3350\POTASSIUM CHLORIDE\SODIUM BICARBONATE\SODIUM CHLORIDE
     Dosage: 1 BAG A DAY
     Route: 048
  39. CELECOXIB [Concomitant]
     Active Substance: CELECOXIB
     Indication: Pain
     Route: 048
     Dates: start: 2022
  40. CELECOXIB [Concomitant]
     Active Substance: CELECOXIB
     Indication: Pain
     Route: 048
     Dates: start: 202207
  41. CALONAL [Concomitant]
     Active Substance: ACETAMINOPHEN
     Indication: Pain
     Dosage: DOSE UNKNOWN
     Route: 048
  42. CALONAL [Concomitant]
     Active Substance: ACETAMINOPHEN
     Indication: Pain
     Dosage: DOSE UNKNOWN, TRAMADOL HYDROCHLORIDE/ACETAMINOPHEN IS WEARING OFF OR BEFORE MEALS
     Route: 048
  43. CALONAL [Concomitant]
     Active Substance: ACETAMINOPHEN
     Indication: Pain
     Route: 048
     Dates: start: 2022
  44. CALONAL [Concomitant]
     Active Substance: ACETAMINOPHEN
     Indication: Pain
     Dosage: DOSE UNKNOWN
     Route: 048
     Dates: start: 2022
  45. CALONAL [Concomitant]
     Active Substance: ACETAMINOPHEN
     Dosage: DOSE UNKNOWN
     Route: 048
  46. REBAMIPIDE [Concomitant]
     Active Substance: REBAMIPIDE
     Dosage: DOSE UNKNOWN
     Route: 048
  47. NAUZELIN [Concomitant]
     Active Substance: DOMPERIDONE
     Dosage: DOSE UNKNOWN
     Route: 048
  48. ITOPRIDE [Concomitant]
     Active Substance: ITOPRIDE
     Indication: Decreased appetite
     Dosage: DOSE UNKNOWN, BEFORE MEALS
     Route: 048
  49. ENSURE [Concomitant]
     Active Substance: AMINO ACIDS\DEXTROSE\ELECTROLYTES NOS\SOYBEAN OIL\VITAMINS
     Indication: Decreased appetite
     Dosage: DOSE UNKNOWN
     Route: 048

REACTIONS (26)
  - Urinary retention [Unknown]
  - Withdrawal syndrome [Unknown]
  - Drug dependence [Unknown]
  - Constipation [Unknown]
  - Nausea [Unknown]
  - Dizziness [Unknown]
  - Somnolence [Unknown]
  - Pyrexia [Unknown]
  - Decreased appetite [Unknown]
  - Weight decreased [Unknown]
  - Abdominal discomfort [Unknown]
  - Anxiety [Unknown]
  - Irritability [Unknown]
  - Feeling abnormal [Unknown]
  - Memory impairment [Unknown]
  - Stomatitis [Unknown]
  - Abdominal pain [Unknown]
  - Blood magnesium increased [Unknown]
  - Diarrhoea [Unknown]
  - Asthenia [Unknown]
  - Amnesia [Unknown]
  - Treatment noncompliance [Unknown]
  - Therapeutic response decreased [Unknown]
  - Labelled drug-drug interaction issue [Unknown]
  - Off label use [Unknown]
  - Depressed level of consciousness [Unknown]

NARRATIVE: CASE EVENT DATE: 20220101
